FAERS Safety Report 5907598-2 (Version None)
Quarter: 2008Q4

REPORT INFORMATION
  Report Type: 
  Country: None (occurrence: None)
  Receive Date: 20081003
  Receipt Date: 20080929
  Transmission Date: 20090506
  Serious: Yes (Other)
  Sender: FDA-Public Use
  Company Number: US-MERCK-0809USA04956

PATIENT
  Age: 46 Year
  Sex: Female

DRUGS (4)
  1. JANUVIA [Suspect]
     Indication: DIABETES MELLITUS
     Route: 048
     Dates: start: 20061130, end: 20080601
  2. BYETTA [Concomitant]
     Route: 051
     Dates: end: 20080601
  3. FORTAMET [Concomitant]
     Route: 065
     Dates: end: 20080601
  4. VITAMIN D (UNSPECIFIED) [Concomitant]
     Route: 065
     Dates: end: 20080601

REACTIONS (1)
  - BREAST CANCER [None]
